FAERS Safety Report 4289710-7 (Version None)
Quarter: 2004Q1

REPORT INFORMATION
  Report Type: 
  Country: None (occurrence: None)
  Receive Date: 20040126
  Receipt Date: 20021223
  Transmission Date: 20041129
  Serious: No
  Sender: FDA-Public Use
  Company Number: 02P-163-0203783-00

PATIENT
  Age: 46 Year
  Sex: Male

DRUGS (6)
  1. TERAZOSIN HYDROCHLORIDE (HYTRIN) (TERAZOSIN HYDROCHLORIDE) (TERAZOSIN [Suspect]
     Indication: DRUG INTERACTION
     Dosage: SEE IMAGE
     Route: 048
     Dates: start: 20021001, end: 20021003
  2. TERAZOSIN HYDROCHLORIDE (HYTRIN) (TERAZOSIN HYDROCHLORIDE) (TERAZOSIN [Suspect]
     Indication: DRUG INTERACTION
     Dosage: SEE IMAGE
     Route: 048
     Dates: start: 20021004, end: 20021006
  3. TERAZOSIN HYDROCHLORIDE (HYTRIN) (TERAZOSIN HYDROCHLORIDE) (TERAZOSIN [Suspect]
     Indication: DRUG INTERACTION
     Dosage: SEE IMAGE
     Route: 048
     Dates: start: 20021007, end: 20021021
  4. TERAZOSIN HYDROCHLORIDE (HYTRIN) (TERAZOSIN HYDROCHLORIDE) (TERAZOSIN [Suspect]
     Indication: DRUG INTERACTION
     Dosage: SEE IMAGE
     Route: 048
     Dates: start: 20021022, end: 20021022
  5. VARDENAFIL [Suspect]
     Indication: DRUG INTERACTION
     Dosage: 10 MG,1 IN D, ORAL
     Route: 048
     Dates: start: 20021017, end: 20021017
  6. PLACEBO [Suspect]
     Indication: DRUG INTERACTION
     Dates: start: 20021015, end: 20021017

REACTIONS (3)
  - ORTHOSTATIC HYPOTENSION [None]
  - RHINITIS [None]
  - SOMNOLENCE [None]
